FAERS Safety Report 9274413 (Version 1)
Quarter: 2013Q2

REPORT INFORMATION
  Report Type: Spontaneous
  Country: US (occurrence: US)
  Receive Date: 20130506
  Receipt Date: 20130506
  Transmission Date: 20140414
  Serious: No
  Sender: FDA-Public Use
  Company Number: US-B.I. PHARMACEUTICALS,INC./RIDGEFIELD-2013-BI-12078BP

PATIENT
  Age: 72 Year
  Sex: Male

DRUGS (5)
  1. SPIRIVA [Suspect]
     Indication: EMPHYSEMA
     Dosage: 18 MCG
     Route: 055
     Dates: start: 2011
  2. MONTELUKAST [Concomitant]
     Route: 048
  3. ADVAIR [Concomitant]
     Route: 055
  4. PROVENTIL [Concomitant]
     Route: 055
  5. TAMSULOSIN [Concomitant]
     Route: 048

REACTIONS (1)
  - Dyspnoea [Not Recovered/Not Resolved]
